FAERS Safety Report 9165100 (Version 1)
Quarter: 2013Q1

REPORT INFORMATION
  Report Type: Spontaneous
  Country: US (occurrence: None)
  Receive Date: 20130228
  Receipt Date: 20130228
  Transmission Date: 20140127
  Serious: Yes (Other)
  Sender: FDA-Public Use
  Company Number: 2013HINLIT0019

PATIENT
  Age: 76 Year
  Sex: Male

DRUGS (3)
  1. LEVETIRACETAM (LEVETIRACETAM) UNKNOWN [Suspect]
     Indication: PRODUCT USED FOR UNKNOWN INDICATION
  2. SODIUM VALPROATE [Suspect]
     Indication: EPILEPSY
  3. CLOBAZAM (CLOBAZAM) [Suspect]
     Indication: EPILEPSY

REACTIONS (10)
  - Circadian rhythm sleep disorder [None]
  - Agitation [None]
  - Disorientation [None]
  - Confusional state [None]
  - Cognitive disorder [None]
  - Hyponatraemia [None]
  - Restlessness [None]
  - Fatigue [None]
  - Aphasia [None]
  - Aggression [None]
